FAERS Safety Report 6871280-8 (Version None)
Quarter: 2010Q3

REPORT INFORMATION
  Report Type: 
  Country: None (occurrence: None)
  Receive Date: 20100723
  Receipt Date: 20100709
  Transmission Date: 20110219
  Serious: Yes (Hospitalization)
  Sender: FDA-Public Use
  Company Number: JP-ROCHE-716692

PATIENT
  Sex: Female
  Weight: 69 kg

DRUGS (19)
  1. TOCILIZUMAB [Suspect]
     Indication: RHEUMATOID ARTHRITIS
     Route: 041
     Dates: start: 20091002, end: 20091002
  2. TOCILIZUMAB [Suspect]
     Route: 041
     Dates: start: 20091030, end: 20091030
  3. TOCILIZUMAB [Suspect]
     Route: 041
     Dates: start: 20091127, end: 20091127
  4. TOCILIZUMAB [Suspect]
     Route: 041
     Dates: start: 20091225, end: 20091225
  5. TOCILIZUMAB [Suspect]
     Route: 041
     Dates: start: 20100122, end: 20100122
  6. TOCILIZUMAB [Suspect]
     Route: 041
     Dates: start: 20100219
  7. AZULFIDINE [Concomitant]
     Route: 048
  8. ISCOTIN [Concomitant]
     Route: 048
  9. PREDONINE [Concomitant]
     Route: 048
  10. GASTER D [Concomitant]
     Route: 048
     Dates: end: 20091029
  11. LIPITOR [Concomitant]
     Route: 048
  12. NORVASC [Concomitant]
     Dosage: DRUG NAME: NORVASC OD
     Route: 048
  13. ZYLORIC [Concomitant]
     Route: 048
  14. LUPRAC [Concomitant]
     Route: 048
  15. URSO 250 [Concomitant]
     Route: 048
  16. PLETAL [Concomitant]
     Route: 048
  17. EPADEL [Concomitant]
     Dosage: DRUG NAME: EPADEL S
     Route: 048
  18. FOSAMAX [Concomitant]
     Dosage: DRUG NAME: FOSAMAC 35 MG
     Route: 048
  19. OMEPRAZOLE [Concomitant]
     Route: 048

REACTIONS (2)
  - OEDEMA PERIPHERAL [None]
  - PLEURAL EFFUSION [None]
